FAERS Safety Report 8450417-3 (Version None)
Quarter: 2012Q2

REPORT INFORMATION
  Report Type: 
  Country: None (occurrence: None)
  Receive Date: 20120613
  Receipt Date: 20120529
  Transmission Date: 20120825
  Serious: Yes (Other)
  Sender: FDA-Public Use
  Company Number: TPA2012A03353

PATIENT
  Age: 8 Decade
  Sex: Male

DRUGS (1)
  1. ADENURIC (FEBUXOSTAT) [Suspect]
     Indication: PRODUCT USED FOR UNKNOWN INDICATION
     Dosage: 80 MG (80 MG, 1 IN 1 D)
     Route: 048
     Dates: start: 20120414, end: 20120418

REACTIONS (4)
  - ANAPHYLACTIC REACTION [None]
  - SWELLING [None]
  - ARTHRALGIA [None]
  - RASH ERYTHEMATOUS [None]
